FAERS Safety Report 4932446-7 (Version None)
Quarter: 2006Q1

REPORT INFORMATION
  Report Type: 
  Country: None (occurrence: None)
  Receive Date: 20060303
  Receipt Date: 20050706
  Transmission Date: 20060701
  Serious: Yes (Other)
  Sender: FDA-Public Use
  Company Number: US-MERCK-0507USA00799

PATIENT
  Sex: Female
  Weight: 69 kg

DRUGS (5)
  1. VIOXX [Suspect]
     Route: 048
  2. BEXTRA [Suspect]
     Route: 065
  3. CELEBREX [Suspect]
     Route: 065
  4. NEXIUM [Concomitant]
     Route: 065
  5. VITAMINS (UNSPECIFIED) [Concomitant]
     Route: 065

REACTIONS (3)
  - ANEURYSM [None]
  - GASTROOESOPHAGEAL REFLUX DISEASE [None]
  - SUBARACHNOID HAEMORRHAGE [None]
